FAERS Safety Report 15893410 (Version 1)
Quarter: 2019Q1

REPORT INFORMATION
  Report Type: Spontaneous
  Country: FR (occurrence: FR)
  Receive Date: 20190130
  Receipt Date: 20190130
  Transmission Date: 20190417
  Serious: Yes (Hospitalization)
  Sender: FDA-Public Use
  Company Number: FR-SUN PHARMACEUTICAL INDUSTRIES LTD-2019RR-197230

PATIENT
  Age: 19 Year
  Sex: Male

DRUGS (3)
  1. CODOLIPRANE [Suspect]
     Active Substance: ACETAMINOPHEN\CODEINE PHOSPHATE
     Indication: INTENTIONAL PRODUCT MISUSE
     Dosage: ()
     Route: 048
     Dates: start: 20180628
  2. TRAMADOL. [Suspect]
     Active Substance: TRAMADOL
     Indication: INTENTIONAL PRODUCT MISUSE
     Dosage: ()
     Route: 048
     Dates: start: 20180628
  3. ACUPAN [Suspect]
     Active Substance: NEFOPAM HYDROCHLORIDE
     Indication: INTENTIONAL PRODUCT MISUSE
     Dosage: ()
     Route: 065
     Dates: start: 20180628

REACTIONS (3)
  - Bradypnoea [Recovered/Resolved]
  - Somnolence [Recovered/Resolved]
  - Drug abuse [Recovered/Resolved]

NARRATIVE: CASE EVENT DATE: 20180628
